FAERS Safety Report 5248923-8 (Version None)
Quarter: 2007Q1

REPORT INFORMATION
  Report Type: 
  Country: None (occurrence: None)
  Receive Date: 20070228
  Receipt Date: 20060428
  Transmission Date: 20070707
  Serious: No
  Sender: FDA-Public Use
  Company Number: US-GLAXOSMITHKLINE-A0595339A

PATIENT
  Age: 43 Year
  Sex: Male
  Weight: 85.5 kg

DRUGS (6)
  1. ZIAGEN [Suspect]
     Indication: HIV INFECTION
     Dosage: 300MG PER DAY
     Route: 048
     Dates: start: 20051101
  2. COMBIVIR [Suspect]
     Indication: HIV INFECTION
     Route: 048
     Dates: start: 20060101
  3. SUSTIVA [Suspect]
     Dosage: 600MG PER DAY
     Route: 048
     Dates: start: 20051101
  4. LEXIVA [Suspect]
     Indication: HIV INFECTION
     Route: 048
     Dates: start: 20060101
  5. EPZICOM [Suspect]
  6. FLUOXETINE [Concomitant]

REACTIONS (9)
  - ABDOMINAL DISTENSION [None]
  - BACK PAIN [None]
  - CHANGE OF BOWEL HABIT [None]
  - HEADACHE [None]
  - MIGRAINE [None]
  - NAUSEA [None]
  - PHOTOSENSITIVITY REACTION [None]
  - RASH GENERALISED [None]
  - VOMITING [None]
